FAERS Safety Report 12798840 (Version 1)
Quarter: 2016Q3

REPORT INFORMATION
  Report Type: Spontaneous
  Country: US (occurrence: US)
  Receive Date: 20160930
  Receipt Date: 20160930
  Transmission Date: 20161109
  Serious: Yes (Hospitalization)
  Sender: FDA-Public Use
  Company Number: US-PERRIGO-16US020239

PATIENT
  Age: 20 Year
  Sex: Male

DRUGS (1)
  1. LOPERAMIDE HYDROCHLORIDE. [Suspect]
     Active Substance: LOPERAMIDE HYDROCHLORIDE
     Indication: DRUG WITHDRAWAL SYNDROME
     Dosage: UP TO 288 MG, QD
     Route: 048
     Dates: start: 201401, end: 2015

REACTIONS (4)
  - Drug withdrawal syndrome [Unknown]
  - Electrocardiogram QT prolonged [Recovered/Resolved]
  - Congestive cardiomyopathy [Recovered/Resolved]
  - Torsade de pointes [Recovered/Resolved]
